FAERS Safety Report 8760496 (Version 1)
Quarter: 2012Q4

REPORT INFORMATION
  Report Type: Spontaneous
  Country: US (occurrence: None)
  Receive Date: 20120829
  Receipt Date: 20120829
  Transmission Date: 20130627
  Serious: Yes (Other)
  Sender: FDA-Public Use
  Company Number: None

PATIENT
  Age: 43 Year
  Sex: Female

DRUGS (1)
  1. ERI VEDGE [Suspect]
     Route: 048
     Dates: start: 20120801

REACTIONS (4)
  - Rash [None]
  - Erythema [None]
  - Pain [None]
  - Drug ineffective [None]
